FAERS Safety Report 15628726 (Version 12)
Quarter: 2020Q3

REPORT INFORMATION
  Report Type: Spontaneous
  Country: US (occurrence: US)
  Receive Date: 20181116
  Receipt Date: 20200706
  Transmission Date: 20201102
  Serious: Yes (Hospitalization, Other)
  Sender: FDA-Public Use
  Company Number: US-PFIZER INC-2018468400

PATIENT
  Age: 87 Year
  Sex: Female

DRUGS (5)
  1. LIPITOR [Suspect]
     Active Substance: ATORVASTATIN CALCIUM
     Indication: BLOOD PRESSURE INCREASED
     Dosage: 40 MG, UNK
     Route: 048
     Dates: start: 2006
  2. NITROSTAT [Concomitant]
     Active Substance: NITROGLYCERIN
     Dosage: UNK
  3. NORVASC [Suspect]
     Active Substance: AMLODIPINE BESYLATE
     Indication: BLOOD PRESSURE INCREASED
     Dosage: 5 MG, DAILY
     Route: 048
     Dates: start: 20181121
  4. XALATAN [Suspect]
     Active Substance: LATANOPROST
     Indication: INFECTION
  5. XALATAN [Suspect]
     Active Substance: LATANOPROST
     Indication: GLAUCOMA
     Dosage: 125 UG, UNK
     Route: 047
     Dates: start: 2006

REACTIONS (8)
  - Sinusitis [Unknown]
  - Fall [Unknown]
  - Choking [Unknown]
  - Meningioma [Unknown]
  - Productive cough [Unknown]
  - Cerebrovascular accident [Unknown]
  - Haemoptysis [Unknown]
  - Ear infection viral [Unknown]
